FAERS Safety Report 5136316-3 (Version None)
Quarter: 2006Q4

REPORT INFORMATION
  Report Type: 
  Country: None (occurrence: None)
  Receive Date: 20061027
  Receipt Date: 20061018
  Transmission Date: 20070319
  Serious: Yes (Congenital Anomaly)
  Sender: FDA-Public Use
  Company Number: GH-GLAXOSMITHKLINE-B0443728A

PATIENT
  Age: 16 Week
  Sex: Male

DRUGS (2)
  1. ALBENDAZOLE [Suspect]
  2. IVERMECTIN [Suspect]

REACTIONS (2)
  - CONGENITAL HEARING DISORDER [None]
  - DRUG EXPOSURE DURING PREGNANCY [None]
